FAERS Safety Report 22387742 (Version 1)
Quarter: 2023Q2

REPORT INFORMATION
  Report Type: Spontaneous
  Country: CN (occurrence: None)
  Receive Date: 20230531
  Receipt Date: 20230531
  Transmission Date: 20230722
  Serious: Yes (Other)
  Sender: FDA-Public Use
  Company Number: 2023A125040

PATIENT
  Age: 74 Year
  Sex: Female

DRUGS (2)
  1. OSIMERTINIB [Suspect]
     Active Substance: OSIMERTINIB
     Indication: Product used for unknown indication
     Route: 048
  2. SAVOLITINIB [Suspect]
     Active Substance: SAVOLITINIB
     Indication: Product used for unknown indication
     Dosage: 400.0MG UNKNOWN
     Route: 048

REACTIONS (3)
  - Oedema [Recovering/Resolving]
  - Paronychia [Recovering/Resolving]
  - Rash [Recovering/Resolving]
